FAERS Safety Report 5445652-2 (Version None)
Quarter: 2007Q3

REPORT INFORMATION
  Report Type: 
  Country: None (occurrence: None)
  Receive Date: 20070904
  Receipt Date: 20070828
  Transmission Date: 20080115
  Serious: Yes (Death)
  Sender: FDA-Public Use
  Company Number: 163-21880-06121256

PATIENT
  Age: 79 Year
  Sex: Male

DRUGS (6)
  1. REVLIMID [Suspect]
     Indication: AMYLOIDOSIS
     Dosage: 5 MG, 1 IN 1 D, ORAL; 15 MG, 1 IN 1 D, ORAL
     Route: 048
     Dates: start: 20061101, end: 20061201
  2. REVLIMID [Suspect]
     Indication: MULTIPLE MYELOMA
     Dosage: 5 MG, 1 IN 1 D, ORAL; 15 MG, 1 IN 1 D, ORAL
     Route: 048
     Dates: start: 20061101, end: 20061201
  3. REVLIMID [Suspect]
     Indication: AMYLOIDOSIS
     Dosage: 5 MG, 1 IN 1 D, ORAL; 15 MG, 1 IN 1 D, ORAL
     Route: 048
     Dates: start: 20061201, end: 20070301
  4. REVLIMID [Suspect]
     Indication: MULTIPLE MYELOMA
     Dosage: 5 MG, 1 IN 1 D, ORAL; 15 MG, 1 IN 1 D, ORAL
     Route: 048
     Dates: start: 20061201, end: 20070301
  5. REVLIMID [Suspect]
  6. LASIX [Concomitant]

REACTIONS (8)
  - AMYLOIDOSIS [None]
  - CARDIAC FAILURE [None]
  - DISEASE PROGRESSION [None]
  - DIZZINESS [None]
  - GAIT DISTURBANCE [None]
  - MONOCLONAL IMMUNOGLOBULIN PRESENT [None]
  - MULTIPLE MYELOMA [None]
  - URINE ANALYSIS ABNORMAL [None]
